FAERS Safety Report 12177438 (Version 1)
Quarter: 2016Q1

REPORT INFORMATION
  Report Type: Spontaneous
  Country: FR (occurrence: FR)
  Receive Date: 20160314
  Receipt Date: 20160314
  Transmission Date: 20160526
  Serious: Yes (Hospitalization)
  Sender: FDA-Public Use
  Company Number: FR-PFIZER INC-2016147280

PATIENT
  Age: 70 Year
  Sex: Female

DRUGS (14)
  1. COAPROVEL [Suspect]
     Active Substance: HYDROCHLOROTHIAZIDE\IRBESARTAN
     Indication: HYPERTENSION
     Dosage: 150 MG, DAILY
     Route: 048
  2. DOLIPRANE [Suspect]
     Active Substance: ACETAMINOPHEN
     Dosage: 1 G, 4X/DAY
     Route: 048
  3. FUROSEMIDE. [Suspect]
     Active Substance: FUROSEMIDE
     Indication: HYPERTENSION
     Dosage: 20 MG, 1X/DAY
     Route: 048
  4. HAVLANE [Suspect]
     Active Substance: LOPRAZOLAM
     Dosage: 20 MG, 1X/DAY
     Route: 048
  5. VENTOLINE /00139502/ [Concomitant]
     Dosage: UNK
  6. KARDEGIC [Suspect]
     Active Substance: ASPIRIN LYSINE
     Dosage: 75 MG, 1X/DAY
     Route: 048
  7. INEXIUM /01479302/ [Suspect]
     Active Substance: ESOMEPRAZOLE MAGNESIUM
     Dosage: 20 MG, 1X/DAY
     Route: 048
  8. LOXEN /00639802/ [Suspect]
     Active Substance: NICARDIPINE
     Indication: HYPERTENSION
     Dosage: 50 MG, 2X/DAY
     Route: 048
  9. IKOREL [Suspect]
     Active Substance: NICORANDIL
     Dosage: 5 MG, 2X/DAY
     Route: 048
  10. ALPRESS [Suspect]
     Active Substance: PRAZOSIN
     Indication: HYPERTENSION
     Dosage: 5 MG, 2X/DAY
     Route: 048
  11. NORMACOL /00561902/ [Concomitant]
     Dosage: UNK
  12. VOTRIENT [Suspect]
     Active Substance: PAZOPANIB HYDROCHLORIDE
     Indication: RENAL CANCER METASTATIC
     Dosage: 400 MG, 1X/DAY
     Route: 048
     Dates: start: 201510
  13. EUPHYLIN [Suspect]
     Active Substance: AMINOPHYLLINE
     Indication: ASTHMA
     Dosage: 600 MG, 2X/DAY
     Route: 048
  14. LEVOTHYROX [Suspect]
     Active Substance: LEVOTHYROXINE
     Indication: HYPOTHYROIDISM
     Dosage: 150 UG, 1X/DAY
     Route: 048

REACTIONS (3)
  - Transient ischaemic attack [Recovering/Resolving]
  - Hypertension [Recovered/Resolved]
  - Visual acuity reduced [Not Recovered/Not Resolved]

NARRATIVE: CASE EVENT DATE: 20160212
